FAERS Safety Report 25887280 (Version 1)
Quarter: 2025Q4

REPORT INFORMATION
  Report Type: Spontaneous
  Country: RU (occurrence: RU)
  Receive Date: 20251006
  Receipt Date: 20251006
  Transmission Date: 20260118
  Serious: Yes (Life-Threatening, Hospitalization, Other)
  Sender: JOHNSON AND JOHNSON
  Company Number: RU-BAYER-2025A131547

PATIENT
  Age: 77 Year
  Sex: Female
  Weight: 72 kg

DRUGS (5)
  1. XARELTO [Suspect]
     Active Substance: RIVAROXABAN
     Indication: Atrial fibrillation
     Dosage: 15 MG, QD
     Route: 048
     Dates: start: 20240207, end: 20250925
  2. PERINDOPRIL [Concomitant]
     Active Substance: PERINDOPRIL
     Indication: Hypertensive heart disease
     Dosage: 2 MG, QD
     Route: 048
     Dates: start: 20240207, end: 20250925
  3. LEVOTHYROXINE SODIUM [Concomitant]
     Active Substance: LEVOTHYROXINE SODIUM
     Indication: Post procedural hypothyroidism
     Dosage: 125 MG
     Route: 048
     Dates: start: 20240207
  4. METOPROLOL [Concomitant]
     Active Substance: METOPROLOL
     Indication: Atrial fibrillation
     Dosage: 12.5 MG, BID
     Route: 048
     Dates: start: 20240207, end: 20250925
  5. ATORVASTATIN [Concomitant]
     Active Substance: ATORVASTATIN
     Indication: Arteriosclerosis
     Dosage: 40 MG
     Route: 048
     Dates: start: 20240207, end: 20250925

REACTIONS (5)
  - Intestinal haemorrhage [Recovering/Resolving]
  - Colitis ulcerative [Unknown]
  - Coagulopathy [Recovering/Resolving]
  - Haematochezia [Unknown]
  - Asthenia [Unknown]

NARRATIVE: CASE EVENT DATE: 20250901
